FAERS Safety Report 5732197-5 (Version None)
Quarter: 2008Q2

REPORT INFORMATION
  Report Type: 
  Country: None (occurrence: None)
  Receive Date: 20080508
  Receipt Date: 20080502
  Transmission Date: 20081010
  Serious: Yes (Hospitalization)
  Sender: FDA-Public Use
  Company Number: BR-PFIZER INC-2008028524

PATIENT
  Sex: Male

DRUGS (6)
  1. LOMOTIL [Suspect]
     Indication: DYSENTERY
     Route: 048
     Dates: start: 20010101, end: 20010101
  2. INSULIN [Concomitant]
     Dosage: DAILY DOSE:25I.U.-FREQ:20 IU MORNING AND 5 IU EVENING
  3. ADALAT [Concomitant]
     Route: 048
  4. PREDNISONE TAB [Concomitant]
     Route: 048
  5. CYCLOSPORINE [Concomitant]
     Route: 048
  6. AAS [Concomitant]
     Route: 048

REACTIONS (4)
  - FOOT AMPUTATION [None]
  - INFLUENZA [None]
  - LIMB INJURY [None]
  - THROMBOSIS [None]
